FAERS Safety Report 11586279 (Version 1)
Quarter: 2015Q4

REPORT INFORMATION
  Report Type: Report from Study
  Country: US (occurrence: US)
  Receive Date: 20151001
  Receipt Date: 20151001
  Transmission Date: 20160304
  Serious: Yes (Hospitalization, Other)
  Sender: FDA-Public Use
  Company Number: US-BAXTER-2015BAX052593

PATIENT
  Age: 17 Year
  Sex: Male
  Weight: 68.8 kg

DRUGS (18)
  1. DEXAMETHASONE. [Suspect]
     Active Substance: DEXAMETHASONE
     Dosage: ON DAYS 1-5; (COURCE B: CYCLE 2, 4 AND 6) (CYCLE= 21 DAYS)
     Route: 048
  2. DOXORUBICIN HYDROCHLORIDE. [Suspect]
     Active Substance: DOXORUBICIN HYDROCHLORIDE
     Indication: ANAPLASTIC LARGE CELL LYMPHOMA T- AND NULL-CELL TYPES
     Dosage: OVER 1-15 MIN ON DAYS 4 AND 5 (COURCE B: CYCLE 2, 4 AND 6) (CYCLE= 21 DAYS)
     Route: 042
  3. IFOSFAMIDE FOR INJECTION [Suspect]
     Active Substance: IFOSFAMIDE
     Indication: ANAPLASTIC LARGE CELL LYMPHOMA T- AND NULL-CELL TYPES
     Dosage: OVER 60 MIN ON DAY 1-5; (COURCE A: CYCLE 1, 3 AND 5) (CYCLE= 21 DAYS)
     Route: 042
  4. DEXAMETHASONE. [Suspect]
     Active Substance: DEXAMETHASONE
     Indication: ANAPLASTIC LARGE CELL LYMPHOMA T- AND NULL-CELL TYPES
     Dosage: ON DAYS 1-2; PROPHASE (CYCLE=5 DAYS)
     Route: 048
     Dates: start: 20140708
  5. CRIZOTINIB [Suspect]
     Active Substance: CRIZOTINIB
     Dosage: DOSE REDUCED IN REMAINING CYCLE 1 (COURCE A: DAYS 1-21 FOR CYCLE 3 AND 5) (CYCLE= 21 DAYS)
     Route: 048
  6. CRIZOTINIB [Suspect]
     Active Substance: CRIZOTINIB
     Dosage: DOSE REDUCED ON DAYS 1-21 (COURCE B: CYCLE 2, 4 AND 6) (CYCLE= 21 DAYS)
     Route: 048
  7. CYTARABINE. [Suspect]
     Active Substance: CYTARABINE
     Dosage: OVER 1-30 MINUTES, ON DAY 4 AND 5 (TOTAL 4 DOSES) (COURCE A: CYCLE 1, 3 AND 5) (CYCLE= 21 DAYS)
     Route: 042
  8. HYDROCORTISONE. [Suspect]
     Active Substance: HYDROCORTISONE
     Indication: ANAPLASTIC LARGE CELL LYMPHOMA T- AND NULL-CELL TYPES
     Dosage: 7.5-12 MG ON DAY 1 (AGE BASED DOSING); PROPHASE (CYCLE = 5 DAYS)
     Route: 037
     Dates: start: 20140708, end: 20140708
  9. CYCLOPHOSPHAMIDE FOR INJECTION, USP [Suspect]
     Active Substance: CYCLOPHOSPHAMIDE
     Indication: ANAPLASTIC LARGE CELL LYMPHOMA T- AND NULL-CELL TYPES
     Dosage: ON DAYS 1 AND 2; PROPHASE (CYCLE=5 DAYS)
     Route: 042
     Dates: start: 20140708, end: 20140709
  10. METHOTREXATE [Suspect]
     Active Substance: METHOTREXATE
     Indication: ANAPLASTIC LARGE CELL LYMPHOMA T- AND NULL-CELL TYPES
     Dosage: 7.5-12 MG ON DAY 1 (AGE BASED DOSING); PROPHASE (CYCLE = 5 DAYS)
     Route: 037
     Dates: start: 20140708
  11. METHOTREXATE [Suspect]
     Active Substance: METHOTREXATE
     Dosage: OVER 3 HOURS ON DAY 1; (COURCE A: CYCLE 1, 3 AND 5) (CYCLE= 21 DAYS)
     Route: 042
  12. METHOTREXATE [Suspect]
     Active Substance: METHOTREXATE
     Dosage: OVER 3 HOURS ON DAY 1 (COURCE B: CYCLE 2, 4 AND 6) (CYCLE= 21 DAYS)
     Route: 042
  13. DEXAMETHASONE. [Suspect]
     Active Substance: DEXAMETHASONE
     Dosage: ON DAYS 1-5; (COURCE A: CYCLE 1, 3 AND 5) (CYCLE= 21 DAYS)
     Route: 048
  14. VP-16 [Suspect]
     Active Substance: ETOPOSIDE
     Indication: ANAPLASTIC LARGE CELL LYMPHOMA T- AND NULL-CELL TYPES
     Dosage: OVER 2 HOURS ON DAYS 4 AND 5 (COURCE A: CYCLE 1, 3 AND 5) (CYCLE= 21 DAYS)
     Route: 042
  15. CRIZOTINIB [Suspect]
     Active Substance: CRIZOTINIB
     Indication: ANAPLASTIC LARGE CELL LYMPHOMA T- AND NULL-CELL TYPES
     Dosage: (COURCE A: CYCLE 1) (CYCLE= 21 DAYS)
     Route: 048
     Dates: end: 20140719
  16. CYTARABINE. [Suspect]
     Active Substance: CYTARABINE
     Indication: ANAPLASTIC LARGE CELL LYMPHOMA T- AND NULL-CELL TYPES
     Dosage: 15-24 MG ON DAY 1 (AGE BASED DOSING); PROPHASE (CYCLE = 5 DAYS)
     Route: 037
     Dates: start: 20140708
  17. DEXAMETHASONE. [Suspect]
     Active Substance: DEXAMETHASONE
     Dosage: ON DAYS 3-5; PROPHASE (CYCLE = 5 DAYS)
     Route: 048
  18. CYCLOPHOSPHAMIDE FOR INJECTION, USP [Suspect]
     Active Substance: CYCLOPHOSPHAMIDE
     Dosage: OVER 15-30 MIN ON DAYS 1-5 (COURCE B: CYCLE 2, 4 AND 6) (CYCLE= 21 DAYS)
     Route: 042

REACTIONS (5)
  - Anuria [Unknown]
  - Stomatitis [Recovered/Resolved with Sequelae]
  - Dehydration [Unknown]
  - Oral candidiasis [Unknown]
  - Hyponatraemia [Recovered/Resolved]

NARRATIVE: CASE EVENT DATE: 20140719
